FAERS Safety Report 7237336-5 (Version None)
Quarter: 2011Q1

REPORT INFORMATION
  Report Type: 
  Country: None (occurrence: None)
  Receive Date: 20110111
  Receipt Date: 20101230
  Transmission Date: 20110831
  Serious: Yes (Other)
  Sender: FDA-Public Use
  Company Number: DE-GDP-1409559

PATIENT
  Sex: Female
  Weight: 72 kg

DRUGS (2)
  1. METVIX (METHYL AMINOLEVULINATE HYDROCHLORIDE) 16% [Suspect]
     Indication: SQUAMOUS CELL CARCINOMA
     Dosage: (0.6 G TOPICAL)
     Route: 061
  2. METVIX (METHYL AMINOLEVULINATE HYDROCHLORIDE) 16% [Suspect]
     Indication: ACTINIC KERATOSIS
     Dosage: (0.6 G TOPICAL)
     Route: 061

REACTIONS (2)
  - SKIN REACTION [None]
  - ECZEMA [None]
